FAERS Safety Report 10039697 (Version 2)
Quarter: 2014Q3

REPORT INFORMATION
  Report Type: Spontaneous
  Country: KR (occurrence: KR)
  Receive Date: 20140326
  Receipt Date: 20140723
  Transmission Date: 20150326
  Serious: Yes (Death, Other)
  Sender: FDA-Public Use
  Company Number: KR-SPECTRUM PHARMACEUTICALS, INC.-14-F-KR-00043

PATIENT
  Age: 57 Year
  Sex: Male

DRUGS (6)
  1. L-ASPARAGINASE [Concomitant]
     Active Substance: ASPARAGINASE
  2. DEXAMETHASONE. [Concomitant]
     Active Substance: DEXAMETHASONE
  3. ETOPOSIDE. [Concomitant]
     Active Substance: ETOPOSIDE
  4. FOLOTYN [Suspect]
     Active Substance: PRALATREXATE
     Indication: ANGIOCENTRIC LYMPHOMA
     Dosage: 24 MG, 2VIALS, WEEKLY
     Route: 042
     Dates: start: 20140115, end: 20140221
  5. IFOSFAMIDE. [Concomitant]
     Active Substance: IFOSFAMIDE
  6. METHOTREXATE (METHOTREXATE SODIUM) [Concomitant]
     Active Substance: METHOTREXATE SODIUM

REACTIONS (3)
  - Disease progression [Fatal]
  - T-cell lymphoma [None]
  - Drug ineffective [Recovered/Resolved]

NARRATIVE: CASE EVENT DATE: 20140224
